FAERS Safety Report 6808745-0 (Version None)
Quarter: 2010Q2

REPORT INFORMATION
  Report Type: 
  Country: None (occurrence: None)
  Receive Date: 20100629
  Receipt Date: 20090810
  Transmission Date: 20101027
  Serious: No
  Sender: FDA-Public Use
  Company Number: US-PFIZER INC-2009253079

PATIENT
  Age: 70 Year
  Sex: Female
  Weight: 77.1 kg

DRUGS (8)
  1. XANAX [Suspect]
     Dosage: UNK
  2. LUNESTA [Suspect]
     Indication: INSOMNIA
     Dosage: 2 MG, HS
     Route: 048
     Dates: start: 20090714
  3. CYMBALTA [Concomitant]
  4. TOPAMAX [Concomitant]
  5. LIPITOR [Concomitant]
  6. ZYRTEC [Concomitant]
  7. NEXIUM [Concomitant]
  8. LISDEXAMFETAMINE DIMESYLATE [Concomitant]

REACTIONS (4)
  - BALANCE DISORDER [None]
  - DRUG INEFFECTIVE [None]
  - EPISTAXIS [None]
  - HEADACHE [None]
